FAERS Safety Report 10412765 (Version 1)
Quarter: 2014Q3

REPORT INFORMATION
  Report Type: Spontaneous
  Country: US (occurrence: None)
  Receive Date: 20140825
  Receipt Date: 20140825
  Transmission Date: 20150326
  Serious: Yes (Death)
  Sender: FDA-Public Use
  Company Number: 2014-US-010555

PATIENT
  Age: 21 Year
  Sex: Male

DRUGS (1)
  1. FAZACLO [Suspect]
     Active Substance: CLOZAPINE
     Route: 048
     Dates: start: 20140512

REACTIONS (1)
  - Death [None]

NARRATIVE: CASE EVENT DATE: 2014
